FAERS Safety Report 5338584-1 (Version None)
Quarter: 2007Q2

REPORT INFORMATION
  Report Type: 
  Country: None (occurrence: None)
  Receive Date: 20070530
  Receipt Date: 20070518
  Transmission Date: 20071010
  Serious: Yes (Other)
  Sender: FDA-Public Use
  Company Number: US-ROCHE-498377

PATIENT
  Age: 46 Year
  Sex: Male

DRUGS (4)
  1. PEGASYS [Suspect]
     Route: 065
     Dates: start: 20070404
  2. PEGASYS [Suspect]
     Dosage: REPORTED AS DOSE INCREASED TO 135 MCG PER WEEK.
     Route: 065
  3. RIBAVIRIN [Suspect]
     Route: 065
     Dates: start: 20070404
  4. CELEXA [Concomitant]

REACTIONS (3)
  - DEPRESSION [None]
  - PLATELET COUNT DECREASED [None]
  - SCHIZOPHRENIA [None]
